FAERS Safety Report 12148163 (Version 2)
Quarter: 2016Q2

REPORT INFORMATION
  Report Type: Spontaneous
  Country: FR (occurrence: FR)
  Receive Date: 20160304
  Receipt Date: 20160413
  Transmission Date: 20160815
  Serious: Yes (Hospitalization)
  Sender: FDA-Public Use
  Company Number: FR-SA-2016SA041035

PATIENT
  Age: 64 Year
  Sex: Male

DRUGS (5)
  1. XATRAL [Suspect]
     Active Substance: ALFUZOSIN
     Route: 065
     Dates: start: 20160122
  2. LASILIX [Suspect]
     Active Substance: FUROSEMIDE
     Route: 065
     Dates: start: 20160119
  3. LEXOMIL [Suspect]
     Active Substance: BROMAZEPAM
     Route: 065
     Dates: start: 20160119
  4. ERY [Suspect]
     Active Substance: ERYTHROMYCIN
     Indication: GASTROINTESTINAL DISORDER
     Route: 048
     Dates: start: 20160115, end: 20160119
  5. PHOSPHONEUROS [Suspect]
     Active Substance: CALCIUM PHOSPHATE, DIBASIC, ANHYDROUS\MAGNESIUM GLYCEROPHOSPHATE\PHOSPHORIC ACID\SODIUM PHOSPHATE, DIBASIC
     Route: 065
     Dates: start: 20160123

REACTIONS (1)
  - Bone marrow failure [Recovering/Resolving]

NARRATIVE: CASE EVENT DATE: 20160125
